FAERS Safety Report 4483556-2 (Version None)
Quarter: 2004Q4

REPORT INFORMATION
  Report Type: 
  Country: None (occurrence: None)
  Receive Date: 20041021
  Receipt Date: 20041021
  Transmission Date: 20050328
  Serious: Yes (Life-Threatening, Hospitalization)
  Sender: FDA-Public Use
  Company Number: None

PATIENT
  Age: 48 Year
  Sex: Female
  Weight: 65.7716 kg

DRUGS (1)
  1. BEXTRA [Suspect]
     Indication: OSTEOARTHRITIS
     Dosage: 10 MG PO QD
     Route: 048
     Dates: start: 20040916, end: 20040923

REACTIONS (3)
  - CONFUSIONAL STATE [None]
  - HEMIPARESIS [None]
  - MENINGITIS ASEPTIC [None]
